FAERS Safety Report 15571257 (Version 1)
Quarter: 2018Q4

REPORT INFORMATION
  Report Type: Spontaneous
  Country: US (occurrence: US)
  Receive Date: 20181031
  Receipt Date: 20181031
  Transmission Date: 20190205
  Serious: Yes (Other)
  Sender: FDA-Public Use
  Company Number: US-TRIS PHARMA, INC.-2018TRISPO00994

PATIENT

DRUGS (1)
  1. DYANAVEL XR [Suspect]
     Active Substance: AMPHETAMINE
     Indication: ATTENTION DEFICIT/HYPERACTIVITY DISORDER
     Dosage: 2.5 OR 5 MG/ML, ONCE A DAY
     Route: 065

REACTIONS (2)
  - Suicidal ideation [Recovered/Resolved]
  - Suicidal behaviour [Unknown]

NARRATIVE: CASE EVENT DATE: 20181016
